FAERS Safety Report 15378884 (Version 1)
Quarter: 2018Q3

REPORT INFORMATION
  Report Type: Spontaneous
  Country: US (occurrence: US)
  Receive Date: 20180906
  Receipt Date: 20180906
  Transmission Date: 20181010
  Serious: Yes (Hospitalization)
  Sender: FDA-Public Use
  Company Number: None

PATIENT
  Age: 56 Year
  Sex: Female
  Weight: 56.5 kg

DRUGS (1)
  1. MERCAPTOPURINE. [Suspect]
     Active Substance: MERCAPTOPURINE
     Dates: end: 20180828

REACTIONS (8)
  - Ocular icterus [None]
  - Pyrexia [None]
  - Hepatic enzyme increased [None]
  - Dyspnoea [None]
  - Vomiting [None]
  - Productive cough [None]
  - Tachycardia [None]
  - Nausea [None]

NARRATIVE: CASE EVENT DATE: 20180904
